FAERS Safety Report 7204974-5 (Version None)
Quarter: 2010Q4

REPORT INFORMATION
  Report Type: 
  Country: None (occurrence: None)
  Receive Date: 20101230
  Receipt Date: 20101223
  Transmission Date: 20110411
  Serious: Yes (Death)
  Sender: FDA-Public Use
  Company Number: DK-GENENTECH-311842

PATIENT
  Sex: Female

DRUGS (10)
  1. RITUXIMAB [Suspect]
     Indication: DIFFUSE LARGE B-CELL LYMPHOMA
     Dosage: 700 MG, DAYS 1+14
     Route: 042
     Dates: start: 20101109, end: 20101210
  2. CYCLOPHOSPHAMIDE [Suspect]
     Indication: DIFFUSE LARGE B-CELL LYMPHOMA
     Dosage: 1200 MG, Q14D
     Route: 042
     Dates: start: 20101109, end: 20101210
  3. DOXORUBICIN HCL [Suspect]
     Indication: DIFFUSE LARGE B-CELL LYMPHOMA
     Dosage: 80 MG, Q14D
     Route: 042
     Dates: start: 20101110, end: 20101210
  4. VINCRISTINE [Suspect]
     Indication: DIFFUSE LARGE B-CELL LYMPHOMA
     Dosage: 2 MG, Q14D
     Route: 042
     Dates: start: 20101110, end: 20101210
  5. PREDNISONE [Suspect]
     Indication: DIFFUSE LARGE B-CELL LYMPHOMA
     Dosage: 100 MG, UNK
     Route: 048
     Dates: start: 20101110, end: 20101214
  6. SULFOTRIM [Concomitant]
     Indication: ANTIFUNGAL PROPHYLAXIS
     Dosage: DOSE: 400/80 MG
     Route: 048
     Dates: start: 20101110, end: 20101222
  7. KININ [Concomitant]
     Indication: RESTLESS LEGS SYNDROME
     Dosage: 200 MG, UNK
     Route: 048
     Dates: start: 20101027, end: 20101222
  8. OXYCONTIN [Concomitant]
     Indication: PAIN
     Dosage: 20 MG, UNK
     Route: 048
     Dates: start: 20100922, end: 20101222
  9. FLUCONAZOLE [Concomitant]
     Indication: ORAL CANDIDIASIS
     Dosage: 200 MG, UNK
     Route: 048
     Dates: start: 20101210, end: 20101222
  10. ACICLODAN [Concomitant]
     Indication: ANTIVIRAL PROPHYLAXIS
     Dosage: 1200 MG, UNK
     Route: 048
     Dates: start: 20101110, end: 20101219

REACTIONS (8)
  - ATRIAL FIBRILLATION [None]
  - DEATH [None]
  - DEHYDRATION [None]
  - DIARRHOEA [None]
  - HEART RATE INCREASED [None]
  - HYPOTENSION [None]
  - PYREXIA [None]
  - SEPSIS [None]
